FAERS Safety Report 5103624-1 (Version None)
Quarter: 2006Q3

REPORT INFORMATION
  Report Type: 
  Country: None (occurrence: None)
  Receive Date: 20060911
  Receipt Date: 20060911
  Transmission Date: 20061208
  Serious: Yes (Hospitalization)
  Sender: FDA-Public Use
  Company Number: None

PATIENT
  Sex: Female
  Weight: 56.4 kg

DRUGS (15)
  1. FLUDARABINE [Suspect]
     Indication: DRUG THERAPY
     Dosage: 42MG   ONCE A DAY   IV DRIP
     Route: 041
     Dates: start: 20060621, end: 20060625
  2. FLUDARABINE [Suspect]
     Indication: STEM CELL TRANSPLANT
     Dosage: 42MG   ONCE A DAY   IV DRIP
     Route: 041
     Dates: start: 20060621, end: 20060625
  3. CAMPATH [Suspect]
     Indication: STEM CELL TRANSPLANT
     Dosage: 20 MG   ONCE A DAY    IV DRIP
     Route: 041
     Dates: start: 20060621, end: 20060625
  4. BUSULFAN [Suspect]
     Dosage: 214MG FOR 2 DOSES 161 X2 DOSES  ONCE A DAY   IV DRIP
     Route: 041
     Dates: start: 20060622, end: 20060625
  5. PROGRAF [Concomitant]
  6. PREVACID [Concomitant]
  7. REMERON [Concomitant]
  8. METOPROLOL [Concomitant]
  9. DAPSONE [Concomitant]
  10. SPIRNOLACTONE [Concomitant]
  11. LISINOPRIL [Concomitant]
  12. CAPOFUNGIN [Concomitant]
  13. VALTREX [Concomitant]
  14. AMBISOME [Concomitant]
  15. RIGLAN [Concomitant]

REACTIONS (2)
  - AGGRESSION [None]
  - DELIRIUM [None]
